FAERS Safety Report 5492567-X (Version None)
Quarter: 2007Q4

REPORT INFORMATION
  Report Type: 
  Country: None (occurrence: None)
  Receive Date: 20071022
  Receipt Date: 20071010
  Transmission Date: 20080405
  Serious: Yes (Other)
  Sender: FDA-Public Use
  Company Number: GB-PFIZER INC-2007085688

PATIENT
  Age: 36 Year
  Sex: Male

DRUGS (2)
  1. CHAMPIX [Suspect]
     Indication: SMOKING CESSATION THERAPY
     Route: 048
     Dates: start: 20070719, end: 20070831
  2. SUMATRIPTAN SUCCINATE [Concomitant]
     Indication: HEADACHE
     Route: 048

REACTIONS (2)
  - HEART RATE DECREASED [None]
  - SINUS BRADYCARDIA [None]
